FAERS Safety Report 7757059-3 (Version None)
Quarter: 2011Q3

REPORT INFORMATION
  Report Type: 
  Country: None (occurrence: None)
  Receive Date: 20110916
  Receipt Date: 20110912
  Transmission Date: 20111222
  Serious: Yes (Hospitalization)
  Sender: FDA-Public Use
  Company Number: US-ELI_LILLY_AND_COMPANY-US201108007604

PATIENT
  Sex: Male
  Weight: 72.562 kg

DRUGS (13)
  1. PEMETREXED [Suspect]
     Indication: HEAD AND NECK CANCER
     Dosage: 500 MG/M2, OTHER, EVERY 21 DAYS
     Route: 042
     Dates: start: 20110315
  2. AQUAPHOR [Concomitant]
  3. CETUXIMAB [Suspect]
     Indication: HEAD AND NECK CANCER
     Dosage: 400 MG/M2, SINGLE, LOADING DOSE
     Route: 042
     Dates: start: 20110308
  4. CETUXIMAB [Suspect]
     Dosage: 250 MG/M2, UNK
     Route: 042
  5. CIPROFLOXACIN [Concomitant]
  6. NYSTATIN [Concomitant]
  7. RADIATION [Suspect]
     Indication: HEAD AND NECK CANCER
     Dosage: 70 GY
     Dates: start: 20110315
  8. DOXYCYCLINE [Concomitant]
  9. FOLIC ACID [Concomitant]
  10. HEPARIN [Concomitant]
  11. DIFLUCAN [Concomitant]
  12. COLACE [Concomitant]
  13. DEXAMETHASONE [Concomitant]
     Dosage: UNK

REACTIONS (1)
  - MUCOSAL INFLAMMATION [None]
